FAERS Safety Report 5261229-6 (Version None)
Quarter: 2007Q1

REPORT INFORMATION
  Report Type: 
  Country: None (occurrence: None)
  Receive Date: 20070309
  Receipt Date: 20070227
  Transmission Date: 20070707
  Serious: Yes (Other)
  Sender: FDA-Public Use
  Company Number: US-PFIZER INC-2007016044

PATIENT
  Sex: Female
  Weight: 90.7 kg

DRUGS (5)
  1. LYRICA [Suspect]
     Indication: TRIGEMINAL NEURALGIA
  2. LYRICA [Suspect]
     Indication: NEURALGIA
  3. EFFEXOR [Concomitant]
  4. VITAMINS [Concomitant]
  5. SYNTHROID [Concomitant]

REACTIONS (4)
  - DEPRESSION [None]
  - INFERIORITY COMPLEX [None]
  - SUICIDAL IDEATION [None]
  - WEIGHT INCREASED [None]
